FAERS Safety Report 10965261 (Version 2)
Quarter: 2015Q2

REPORT INFORMATION
  Report Type: Spontaneous
  Country: US (occurrence: US)
  Receive Date: 20150330
  Receipt Date: 20150417
  Transmission Date: 20150821
  Serious: No
  Sender: FDA-Public Use
  Company Number: US-PFIZER INC-2015107214

PATIENT
  Age: 60 Year
  Sex: Female

DRUGS (7)
  1. LYRICA [Suspect]
     Active Substance: PREGABALIN
     Indication: PAIN
  2. LYRICA [Suspect]
     Active Substance: PREGABALIN
     Indication: PAIN IN EXTREMITY
  3. LYRICA [Suspect]
     Active Substance: PREGABALIN
     Indication: FIBROMYALGIA
     Dosage: 150MG WHEN SHE GET UP - 10AM; 50MG AT 8.00PM
  4. LYRICA [Suspect]
     Active Substance: PREGABALIN
     Indication: KYPHOSIS
     Dosage: 150MG WHEN SHE GET UP - 10AM; 50MG AT 8.00PM
  5. LYRICA [Suspect]
     Active Substance: PREGABALIN
     Indication: MYOFASCITIS
  6. LYRICA [Suspect]
     Active Substance: PREGABALIN
     Indication: HEADACHE
  7. LYRICA [Suspect]
     Active Substance: PREGABALIN
     Indication: SCOLIOSIS

REACTIONS (3)
  - Nasopharyngitis [Recovered/Resolved]
  - Malaise [Recovered/Resolved]
  - Bronchitis [Recovered/Resolved]
